FAERS Safety Report 17096416 (Version 1)
Quarter: 2019Q4

REPORT INFORMATION
  Report Type: Spontaneous
  Country: SE (occurrence: SE)
  Receive Date: 20191202
  Receipt Date: 20191202
  Transmission Date: 20200122
  Serious: Yes (Hospitalization)
  Sender: FDA-Public Use
  Company Number: SE-TEVA-2019-SE-1144295

PATIENT
  Age: 23 Year
  Sex: Female

DRUGS (5)
  1. THERALEN [Concomitant]
     Active Substance: TRIMEPRAZINE
     Dosage: 1 ML NORMAL DOSE
     Route: 048
     Dates: start: 20181117, end: 20181117
  2. PARGITAN [Concomitant]
     Active Substance: TRIHEXYPHENIDYL HYDROCHLORIDE
     Dosage: 5 MG
     Route: 048
     Dates: start: 20181117, end: 20181117
  3. LERGIGAN (PROMETHAZINE HYDROCHLORIDE) [Suspect]
     Active Substance: PROMETHAZINE HYDROCHLORIDE
     Dosage: 250 MG
     Route: 048
     Dates: start: 20181117, end: 20181117
  4. OXASCAND [Concomitant]
     Active Substance: OXAZEPAM
     Dosage: 15 MG NORMAL DOSE
     Route: 048
     Dates: start: 20181117, end: 20181117
  5. STESOLID [Suspect]
     Active Substance: DIAZEPAM
     Dosage: 20 MG
     Route: 048
     Dates: start: 20181117, end: 20181117

REACTIONS (4)
  - Lethargy [Unknown]
  - Formication [Unknown]
  - Intentional self-injury [Unknown]
  - Intentional overdose [Unknown]

NARRATIVE: CASE EVENT DATE: 20181117
